FAERS Safety Report 15623960 (Version 1)
Quarter: 2018Q4

REPORT INFORMATION
  Report Type: Report from Study
  Country: None (occurrence: BG)
  Receive Date: 20181116
  Receipt Date: 20181116
  Transmission Date: 20190205
  Serious: Yes (Death, Hospitalization)
  Sender: FDA-Public Use
  Company Number: BG-ABBVIE-18S-022-2548166-00

PATIENT
  Age: 65 Year
  Sex: Male

DRUGS (1)
  1. DUODOPA [Suspect]
     Active Substance: CARBIDOPA\LEVODOPA
     Indication: PARKINSON^S DISEASE
     Dosage: MD- 8 ML??CR- 4.0 ML/H??EX 1.0 ML
     Route: 050
     Dates: start: 20180612, end: 20181111

REACTIONS (3)
  - Multiple organ dysfunction syndrome [Fatal]
  - Delirium [Not Recovered/Not Resolved]
  - Polyneuropathy [Not Recovered/Not Resolved]

NARRATIVE: CASE EVENT DATE: 2018
